FAERS Safety Report 14846207 (Version 2)
Quarter: 2018Q4

REPORT INFORMATION
  Report Type: Spontaneous
  Country: FR (occurrence: FR)
  Receive Date: 20180504
  Receipt Date: 20181024
  Transmission Date: 20190204
  Serious: Yes (Other)
  Sender: FDA-Public Use
  Company Number: FR-MERCK KGAA-2047197

PATIENT
  Age: 57 Year
  Sex: Female

DRUGS (1)
  1. EUTHYROX [Suspect]
     Active Substance: LEVOTHYROXINE SODIUM
     Indication: PRODUCT USED FOR UNKNOWN INDICATION

REACTIONS (16)
  - Irritability [None]
  - Fatigue [None]
  - Decreased interest [None]
  - Discomfort [None]
  - Pain [None]
  - Diarrhoea [None]
  - Negative thoughts [None]
  - Dizziness [None]
  - Social avoidant behaviour [None]
  - Vertigo [None]
  - Arrhythmia [None]
  - Alopecia [None]
  - Gamma-glutamyltransferase increased [None]
  - Depression [None]
  - Headache [None]
  - Insomnia [None]

NARRATIVE: CASE EVENT DATE: 20170828
